FAERS Safety Report 25920704 (Version 1)
Quarter: 2025Q4

REPORT INFORMATION
  Report Type: Spontaneous
  Country: EU (occurrence: EU)
  Receive Date: 20251014
  Receipt Date: 20251014
  Transmission Date: 20260117
  Serious: Yes (Other)
  Sender: Harrow Health
  Company Number: EU-IMP-2023000431

PATIENT

DRUGS (6)
  1. TRIESENCE [Suspect]
     Active Substance: TRIAMCINOLONE ACETONIDE
     Indication: Vernal keratoconjunctivitis
     Dosage: REGIMEN #1 ) BILATERAL (OPHTHALMIC)
  2. TRIESENCE [Suspect]
     Active Substance: TRIAMCINOLONE ACETONIDE
     Dosage: REGIMEN #2 UNK (OPHTHALMIC)
  3. TRIESENCE [Suspect]
     Active Substance: TRIAMCINOLONE ACETONIDE
     Dosage: REGIMEN #3 UNK (OPHTHALMIC)
  4. DEXAMETHASONE [Concomitant]
     Active Substance: DEXAMETHASONE
     Indication: Product used for unknown indication
     Route: 061
  5. KETOTIFEN [Concomitant]
     Active Substance: KETOTIFEN
     Indication: Product used for unknown indication
     Route: 061
  6. TIMOLOL [Suspect]
     Active Substance: TIMOLOL

REACTIONS (5)
  - Intraocular pressure increased [Recovered/Resolved]
  - Glaucoma [Recovering/Resolving]
  - Drug ineffective [Unknown]
  - Product use in unapproved indication [Unknown]
  - Product use issue [Unknown]
